FAERS Safety Report 4482616-X (Version None)
Quarter: 2004Q3

REPORT INFORMATION
  Report Type: 
  Country: None (occurrence: None)
  Receive Date: 20040921
  Receipt Date: 20040616
  Transmission Date: 20050211
  Serious: Yes (Death)
  Sender: FDA-Public Use
  Company Number: 163-20785-04060461

PATIENT
  Age: 72 Year
  Sex: Male
  Weight: 64.1 kg

DRUGS (2)
  1. THALOMID [Suspect]
     Indication: NON-SMALL CELL LUNG CANCER
     Dosage: 200 - 1200 MG, QHS, ORAL
     Route: 048
     Dates: start: 20040416, end: 20040521
  2. RADIOTHERAPY [Suspect]
     Indication: NON-SMALL CELL LUNG CANCER
     Dosage: 2.5 GY, QD ON DAYS 1-5 WEEKLY FOR 3 WKS
     Dates: start: 20040416

REACTIONS (4)
  - DEATH [None]
  - DISEASE PROGRESSION [None]
  - METASTASES TO ADRENALS [None]
  - METASTASES TO CENTRAL NERVOUS SYSTEM [None]
